FAERS Safety Report 11607975 (Version 1)
Quarter: 2015Q4

REPORT INFORMATION
  Report Type: Spontaneous
  Country: IT (occurrence: IT)
  Receive Date: 20151007
  Receipt Date: 20151007
  Transmission Date: 20160304
  Serious: Yes (Hospitalization)
  Sender: FDA-Public Use
  Company Number: IT-PFIZER INC-2015331442

PATIENT
  Age: 9 Day
  Sex: Male

DRUGS (1)
  1. XANAX [Suspect]
     Active Substance: ALPRAZOLAM
     Dosage: 0.12 MG, TOTAL
     Route: 048

REACTIONS (2)
  - Sopor [Unknown]
  - Drug administration error [Unknown]

NARRATIVE: CASE EVENT DATE: 20150819
